FAERS Safety Report 24215887 (Version 1)
Quarter: 2024Q3

REPORT INFORMATION
  Report Type: Spontaneous
  Country: US (occurrence: US)
  Receive Date: 20240816
  Receipt Date: 20240816
  Transmission Date: 20241016
  Serious: No
  Sender: EPIC PHARM
  Company Number: US-EPICPHARMA-US-2024EPCSPO00967

PATIENT
  Age: 57 Year
  Sex: Male
  Weight: 92.98 kg

DRUGS (1)
  1. METHYLPREDNISOLONE [Suspect]
     Active Substance: METHYLPREDNISOLONE
     Indication: Hypersensitivity
     Route: 065
     Dates: start: 20240730, end: 20240731

REACTIONS (1)
  - Product dose omission issue [Unknown]
